FAERS Safety Report 11890206 (Version 1)
Quarter: 2016Q1

REPORT INFORMATION
  Report Type: Spontaneous
  Country: IT (occurrence: IT)
  Receive Date: 20160105
  Receipt Date: 20160105
  Transmission Date: 20160526
  Serious: Yes (Hospitalization)
  Sender: FDA-Public Use
  Company Number: IT-IMPAX LABORATORIES, INC-2015-IPXL-01320

PATIENT
  Age: 40 Year
  Sex: Male

DRUGS (1)
  1. CARBIDOPA-LEVODOPA ER [Suspect]
     Active Substance: CARBIDOPA\LEVODOPA
     Indication: PARKINSON^S DISEASE
     Dosage: 4 ML/HOUR WITH EXTRA DOSES OF 2.0 ML USED TWO TO THREE TIMES DAILY UP TO 2000 MG/
     Route: 065

REACTIONS (1)
  - Dopamine dysregulation syndrome [Recovering/Resolving]
